FAERS Safety Report 8992078 (Version 1)
Quarter: 2012Q4

REPORT INFORMATION
  Report Type: 
  Country: US (occurrence: US)
  Receive Date: 20121231
  Receipt Date: 20121231
  Transmission Date: 20130627
  Serious: Yes (Hospitalization, Other)
  Sender: FDA-Public Use
  Company Number: CHPA2012US025604

PATIENT
  Age: 53 Year
  Sex: Female

DRUGS (2)
  1. EXCEDRIN MIGRAINE [Suspect]
     Indication: BACK PAIN
     Dosage: 2 tablets as needed
     Route: 048
  2. TYLENOL EXTRA STRENGTH [Suspect]
     Dosage: Unk, Unk

REACTIONS (3)
  - Renal failure [Unknown]
  - Hepatic failure [Unknown]
  - Off label use [Unknown]
